FAERS Safety Report 8227349-9 (Version None)
Quarter: 2012Q1

REPORT INFORMATION
  Report Type: 
  Country: None (occurrence: None)
  Receive Date: 20120322
  Receipt Date: 20120314
  Transmission Date: 20120608
  Serious: Yes (Hospitalization)
  Sender: FDA-Public Use
  Company Number: US-BAYER-2011-106684

PATIENT
  Age: 29 Year
  Sex: Female
  Weight: 69.841 kg

DRUGS (5)
  1. PREVACID [Concomitant]
  2. XANAX [Concomitant]
  3. PEPCID [Concomitant]
  4. WELLBUTRIN [Concomitant]
  5. YAZ [Suspect]
     Dosage: UNK
     Route: 048
     Dates: start: 20090101, end: 20090101

REACTIONS (5)
  - EMOTIONAL DISTRESS [None]
  - ABDOMINAL PAIN UPPER [None]
  - DIARRHOEA [None]
  - DYSPEPSIA [None]
  - CHOLECYSTITIS CHRONIC [None]
